FAERS Safety Report 9827354 (Version 1)
Quarter: 2014Q1

REPORT INFORMATION
  Report Type: Spontaneous
  Country: US (occurrence: US)
  Receive Date: 20140117
  Receipt Date: 20140117
  Transmission Date: 20141002
  Serious: Yes (Other)
  Sender: FDA-Public Use
  Company Number: US-PFIZER INC-2014011163

PATIENT
  Age: 38 Year
  Sex: Female

DRUGS (5)
  1. ZOSYN [Suspect]
  2. VANCOMYCIN HCL [Suspect]
     Dosage: UNK
  3. DIANEAL [Suspect]
     Dosage: 1.5% PD4
     Route: 033
     Dates: start: 20130201, end: 20130722
  4. DIANEAL [Suspect]
     Dosage: 1.5% PD4
     Route: 033
     Dates: start: 20130201
  5. LEVAQUIN [Suspect]
     Dosage: UNK

REACTIONS (9)
  - Peritonitis bacterial [Unknown]
  - Peritoneal haemorrhage [Unknown]
  - Convulsion [Unknown]
  - Hypoxia [Unknown]
  - Respiratory failure [Unknown]
  - Klebsiella sepsis [Unknown]
  - Medical device complication [Unknown]
  - Hypocalcaemia [Unknown]
  - Fluid overload [Unknown]
